FAERS Safety Report 9154458 (Version 1)
Quarter: 2013Q1

REPORT INFORMATION
  Report Type: Spontaneous
  Country: US (occurrence: US)
  Receive Date: 20130311
  Receipt Date: 20130311
  Transmission Date: 20140127
  Serious: No
  Sender: FDA-Public Use
  Company Number: US-ABBOTT-12P-163-0928379-00

PATIENT
  Sex: Male

DRUGS (1)
  1. LUPRON DEPOT 11.25 MG [Suspect]
     Indication: PROSTATE CANCER
     Dosage: TWO DOSES OF 11.25MG / 3 MONTH DOSAGE
     Route: 030
     Dates: start: 201110

REACTIONS (4)
  - Incorrect drug dosage form administered [Unknown]
  - Drug prescribing error [Unknown]
  - Prostatic specific antigen increased [Not Recovered/Not Resolved]
  - Medication error [Unknown]
